FAERS Safety Report 4507401-1 (Version None)
Quarter: 2004Q4

REPORT INFORMATION
  Report Type: 
  Country: None (occurrence: None)
  Receive Date: 20041118
  Receipt Date: 20041108
  Transmission Date: 20050328
  Serious: Yes (Hospitalization)
  Sender: FDA-Public Use
  Company Number: 2004090797

PATIENT
  Sex: Female

DRUGS (2)
  1. ZOLOFT [Suspect]
     Indication: ILL-DEFINED DISORDER
  2. CELECOXIB (CELECOXIB) [Concomitant]

REACTIONS (3)
  - CONVULSION [None]
  - ECONOMIC PROBLEM [None]
  - MALAISE [None]
